FAERS Safety Report 4926390-9 (Version None)
Quarter: 2006Q1

REPORT INFORMATION
  Report Type: 
  Country: None (occurrence: None)
  Receive Date: 20060228
  Receipt Date: 20051110
  Transmission Date: 20060701
  Serious: Yes (Other)
  Sender: FDA-Public Use
  Company Number: US-GLAXOSMITHKLINE-A0581808A

PATIENT
  Age: 17 Year
  Sex: Female
  Weight: 52.3 kg

DRUGS (6)
  1. LAMICTAL [Suspect]
     Dosage: 50MG PER DAY
     Route: 048
     Dates: start: 20051013, end: 20051105
  2. SEROQUEL [Concomitant]
  3. PRILOSEC [Concomitant]
  4. ADDERALL XR 10 [Concomitant]
  5. ACCUTANE [Concomitant]
  6. ORTHO TRI-CYCLEN [Concomitant]

REACTIONS (18)
  - ADVERSE DRUG REACTION [None]
  - ARTHRALGIA [None]
  - ARTHRITIS [None]
  - CHILLS [None]
  - COORDINATION ABNORMAL [None]
  - DIPLOPIA [None]
  - DIZZINESS [None]
  - ERYTHEMA [None]
  - HYPERHIDROSIS [None]
  - MALAISE [None]
  - MOUTH ULCERATION [None]
  - NASAL ULCER [None]
  - NAUSEA [None]
  - PAIN [None]
  - RASH [None]
  - SKIN EXFOLIATION [None]
  - STEVENS-JOHNSON SYNDROME [None]
  - VOMITING [None]
